FAERS Safety Report 18353830 (Version 1)
Quarter: 2020Q4

REPORT INFORMATION
  Report Type: Spontaneous
  Country: US (occurrence: US)
  Receive Date: 20201006
  Receipt Date: 20201006
  Transmission Date: 20210114
  Serious: Yes (Hospitalization)
  Sender: FDA-Public Use
  Company Number: None

PATIENT
  Age: 70 Year
  Sex: Female

DRUGS (24)
  1. ENBREL [Suspect]
     Active Substance: ETANERCEPT
     Indication: RHEUMATOID ARTHRITIS
     Dosage: OTHER DOSE:50MG (1 PEN);?
     Route: 058
     Dates: start: 20200512
  2. HYDROXYCHLOR [Concomitant]
     Active Substance: HYDROXYCHLOROQUINE
  3. NITROFURANTIN [Concomitant]
     Active Substance: NITROFURANTOIN
  4. HYDROCO/APP [Concomitant]
  5. OXYBUTYNIN. [Concomitant]
     Active Substance: OXYBUTYNIN CHLORIDE
  6. SMZ/TMP DS [Concomitant]
     Active Substance: SULFAMETHOXAZOLE\TRIMETHOPRIM
  7. ASPIRIN CHW [Concomitant]
  8. CRUSH VIT C [Concomitant]
  9. NITROGLYCERN [Concomitant]
  10. PREDNISONE. [Concomitant]
     Active Substance: PREDNISONE
  11. ATORVASTATIN [Concomitant]
     Active Substance: ATORVASTATIN
  12. METFORMIN [Concomitant]
     Active Substance: METFORMIN HYDROCHLORIDE
  13. MUPIROCIN. [Concomitant]
     Active Substance: MUPIROCIN
  14. PLAVIX [Concomitant]
     Active Substance: CLOPIDOGREL BISULFATE
  15. CLOPIDOGREL [Concomitant]
     Active Substance: CLOPIDOGREL BISULFATE
  16. DICLOFENAC GEL [Concomitant]
     Active Substance: DICLOFENAC
  17. LIPITOR [Concomitant]
     Active Substance: ATORVASTATIN CALCIUM
  18. VITAMIN D [Concomitant]
     Active Substance: VITAMIN D NOS
  19. OSELTAMIVIR [Concomitant]
     Active Substance: OSELTAMIVIR
  20. POT CITRATE [Concomitant]
     Active Substance: POTASSIUM CITRATE
  21. TAMSULOSIN [Concomitant]
     Active Substance: TAMSULOSIN
  22. VITAMIN D2 [Concomitant]
     Active Substance: ERGOCALCIFEROL
  23. CYCLOBENZAPR [Concomitant]
     Active Substance: CYCLOBENZAPRINE
  24. TRAMADOL HCL [Concomitant]
     Active Substance: TRAMADOL HYDROCHLORIDE

REACTIONS (1)
  - Hip arthroplasty [None]

NARRATIVE: CASE EVENT DATE: 202006
